FAERS Safety Report 25956372 (Version 1)
Quarter: 2025Q4

REPORT INFORMATION
  Report Type: Spontaneous
  Country: US (occurrence: None)
  Receive Date: 20251024
  Receipt Date: 20251024
  Transmission Date: 20260118
  Serious: Yes (Hospitalization)
  Sender: FDA-CTU
  Company Number: None

PATIENT
  Age: 65 Year
  Sex: Female
  Weight: 87.8 kg

DRUGS (1)
  1. FLUOROURACIL [Suspect]
     Active Substance: FLUOROURACIL
     Dates: end: 20250916

REACTIONS (5)
  - Blood creatinine increased [None]
  - Hyponatraemia [None]
  - Acute kidney injury [None]
  - Hypovolaemia [None]
  - Hypophagia [None]

NARRATIVE: CASE EVENT DATE: 20251006
